FAERS Safety Report 19920999 (Version 1)
Quarter: 2021Q4

REPORT INFORMATION
  Report Type: Spontaneous
  Country: US (occurrence: US)
  Receive Date: 20211005
  Receipt Date: 20211005
  Transmission Date: 20220303
  Serious: No
  Sender: FDA-Public Use
  Company Number: US-ADAMAS PHARMA, LLC-2021ADA01620

PATIENT
  Age: 47 Year
  Sex: Female
  Weight: 67.12 kg

DRUGS (9)
  1. GOCOVRI [Suspect]
     Active Substance: AMANTADINE
     Indication: Parkinson^s disease
     Dosage: 274 MG, 1X/DAY
     Route: 048
     Dates: start: 20200514, end: 202106
  2. CARBIDOPA/LEVODOPA (SINEMET) [Concomitant]
     Dosage: UNK, 3X/DAY
  3. PROPRANOLOL [Concomitant]
     Active Substance: PROPRANOLOL HYDROCHLORIDE
     Dosage: 40 MG, 1X/DAY, IN THE MORNING
  4. PANTOPRAZOLE [Concomitant]
     Active Substance: PANTOPRAZOLE
     Dosage: 40 MG, 1X/DAY IN THE MORNING
  5. VITAMIN D [Concomitant]
     Active Substance: VITAMIN D NOS
     Dosage: 50000 IU, 1X/WEEK
  6. CLONAZEPAM [Concomitant]
     Active Substance: CLONAZEPAM
     Dosage: 1 MG, 1X/DAY, AT NIGHTTIME
  7. RAMELTEON [Concomitant]
     Active Substance: RAMELTEON
     Dosage: 8 MG, 1X/DAY, AT NIGHTTIME
  8. BUSPIRONE [Concomitant]
     Active Substance: BUSPIRONE HYDROCHLORIDE
     Dosage: 5 MG, 3X/DAY
  9. WELLBUTRIN [Concomitant]
     Active Substance: BUPROPION HYDROCHLORIDE
     Dosage: 300 MG, 1X/DAY

REACTIONS (1)
  - Chronic pigmented purpura [Recovering/Resolving]

NARRATIVE: CASE EVENT DATE: 20200501
